FAERS Safety Report 6725209-3 (Version None)
Quarter: 2010Q2

REPORT INFORMATION
  Report Type: 
  Country: None (occurrence: None)
  Receive Date: 20100514
  Receipt Date: 20100512
  Transmission Date: 20101027
  Serious: Yes (Death)
  Sender: FDA-Public Use
  Company Number: PHHY2010CA28106

PATIENT
  Sex: Male
  Weight: 68.5 kg

DRUGS (1)
  1. EXELON [Suspect]
     Indication: DEMENTIA ALZHEIMER'S TYPE
     Dosage: 10 MG ID
     Route: 062
     Dates: start: 20100121, end: 20100321

REACTIONS (1)
  - CARDIAC FAILURE [None]
